FAERS Safety Report 12585207 (Version 1)
Quarter: 2016Q3

REPORT INFORMATION
  Report Type: Report from Study
  Country: GB (occurrence: GB)
  Receive Date: 20160723
  Receipt Date: 20160723
  Transmission Date: 20161109
  Serious: Yes (Hospitalization)
  Sender: FDA-Public Use
  Company Number: GB-ABBVIE-16K-167-1650440-00

PATIENT
  Age: 72 Year
  Sex: Male

DRUGS (1)
  1. HUMIRA [Suspect]
     Active Substance: ADALIMUMAB
     Indication: RHEUMATOID ARTHRITIS
     Route: 058
     Dates: start: 20060214, end: 20160315

REACTIONS (1)
  - End stage renal disease [Unknown]

NARRATIVE: CASE EVENT DATE: 20160215
